FAERS Safety Report 12885459 (Version 1)
Quarter: 2016Q4

REPORT INFORMATION
  Report Type: Spontaneous
  Country: US (occurrence: US)
  Receive Date: 20161026
  Receipt Date: 20161026
  Transmission Date: 20170207
  Serious: Yes (Life-Threatening, Hospitalization, Disabling)
  Sender: FDA-Public Use
  Company Number: None

PATIENT
  Age: 52 Year
  Sex: Male
  Weight: 81.65 kg

DRUGS (1)
  1. LISINOPRIL USP 20 MG [Suspect]
     Active Substance: LISINOPRIL
     Indication: HYPERTENSION
     Dosage: ?          QUANTITY:^1^ M14: {VAC %? H2)?MOOD;?
     Route: 048
     Dates: start: 20160806, end: 20160902

REACTIONS (1)
  - Angioedema [None]

NARRATIVE: CASE EVENT DATE: 20160909
